FAERS Safety Report 12454375 (Version 3)
Quarter: 2016Q4

REPORT INFORMATION
  Report Type: Report from Study
  Country: US (occurrence: US)
  Receive Date: 20160610
  Receipt Date: 20161212
  Transmission Date: 20170207
  Serious: Yes (Hospitalization)
  Sender: FDA-Public Use
  Company Number: US-ROCHE-1769064

PATIENT
  Age: 76 Year
  Sex: Male
  Weight: 97.16 kg

DRUGS (22)
  1. LOVASTATIN. [Concomitant]
     Active Substance: LOVASTATIN
  2. MICRO-K [Concomitant]
     Active Substance: POTASSIUM CHLORIDE
  3. HUMALOG [Concomitant]
     Active Substance: INSULIN LISPRO
     Dosage: AS NEEDED.
     Route: 058
     Dates: start: 20160514
  4. PRILOSEC [Concomitant]
     Active Substance: OMEPRAZOLE MAGNESIUM
  5. LOPRESSOR [Concomitant]
     Active Substance: METOPROLOL TARTRATE
     Route: 048
  6. LEVAQUIN [Concomitant]
     Active Substance: LEVOFLOXACIN
     Route: 048
  7. ZYLOPRIM [Concomitant]
     Active Substance: ALLOPURINOL
  8. METFORMIN [Concomitant]
     Active Substance: METFORMIN HYDROCHLORIDE
     Route: 048
  9. RESTORIL [Concomitant]
     Active Substance: TEMAZEPAM
  10. LENALIDOMIDE [Suspect]
     Active Substance: LENALIDOMIDE
     Indication: NON-HODGKIN^S LYMPHOMA UNSPECIFIED HISTOLOGY INDOLENT
     Dosage: IN THE MORNING EACH DAY ON DAYS 2 - 22, FOLLOWED BY 6 DAYS OF NO THERAPY OF EACH 28-DAY CYCLE
     Route: 048
  11. MIRAPEX [Concomitant]
     Active Substance: PRAMIPEXOLE DIHYDROCHLORIDE
  12. NEURONTIN [Concomitant]
     Active Substance: GABAPENTIN
     Route: 048
  13. ELIQUIS [Concomitant]
     Active Substance: APIXABAN
     Route: 048
  14. ZOFRAN [Concomitant]
     Active Substance: ONDANSETRON HYDROCHLORIDE
  15. AUGMENTIN [Concomitant]
     Active Substance: AMOXICILLIN\CLAVULANATE POTASSIUM
     Route: 048
  16. MEVACOR [Concomitant]
     Active Substance: LOVASTATIN
  17. PROTONIX [Concomitant]
     Active Substance: PANTOPRAZOLE SODIUM
  18. OBINUTUZUMAB [Suspect]
     Active Substance: OBINUTUZUMAB
     Indication: NON-HODGKIN^S LYMPHOMA UNSPECIFIED HISTOLOGY INDOLENT
     Dosage: ON DAY 1, 8, AND 15 OF CYCLE ONE AND ON DAY 1 OF EACH SUBSEQUENT CYCLE UP TO 6 CYCLES
     Route: 042
  19. MAG-OX [Concomitant]
     Active Substance: MAGNESIUM OXIDE
     Route: 048
  20. TAMBOCOR [Concomitant]
     Active Substance: FLECAINIDE ACETATE
     Route: 048
  21. TYLENOL #3 (UNITED STATES) [Concomitant]
  22. HEPARIN SODIUM. [Concomitant]
     Active Substance: HEPARIN SODIUM
     Route: 065

REACTIONS (7)
  - Lung infection [Unknown]
  - Implant site erythema [Unknown]
  - Implant site inflammation [Unknown]
  - Atrial fibrillation [Recovering/Resolving]
  - Pyrexia [Unknown]
  - Infection [Unknown]
  - Cardiac disorder [Unknown]

NARRATIVE: CASE EVENT DATE: 20160511
